FAERS Safety Report 7911082-4 (Version None)
Quarter: 2011Q4

REPORT INFORMATION
  Report Type: 
  Country: None (occurrence: None)
  Receive Date: 20111114
  Receipt Date: 20111102
  Transmission Date: 20120403
  Serious: Yes (Other)
  Sender: FDA-Public Use
  Company Number: US-BRISTOL-MYERS SQUIBB COMPANY-16092983

PATIENT
  Age: 53 Year
  Sex: Male
  Weight: 79 kg

DRUGS (5)
  1. CAMPTOSAR [Concomitant]
  2. ERBITUX [Suspect]
     Indication: COLON CANCER
     Dosage: INTER ON 12SEP11,RESTARTED ON SAME DATE 12SEP11
     Route: 042
     Dates: start: 20110912
  3. AVASTIN [Concomitant]
  4. LEUCOVORIN CALCIUM [Concomitant]
  5. FLUOROURACIL [Concomitant]
     Dosage: 46 HRS INF PUMP OF FLUOROURACIL 4632MG.

REACTIONS (11)
  - CHEST PAIN [None]
  - GINGIVAL PAIN [None]
  - SKIN HAEMORRHAGE [None]
  - RASH PRURITIC [None]
  - NASAL DISCOMFORT [None]
  - RASH [None]
  - GLOSSODYNIA [None]
  - EYE PAIN [None]
  - FLUSHING [None]
  - MUCOSAL INFLAMMATION [None]
  - SENSITIVITY OF TEETH [None]
